FAERS Safety Report 11643543 (Version 1)
Quarter: 2015Q4

REPORT INFORMATION
  Report Type: Spontaneous
  Country: US (occurrence: None)
  Receive Date: 20151019
  Receipt Date: 20151019
  Transmission Date: 20160304
  Serious: No
  Sender: FDA-Public Use
  Company Number: None

PATIENT
  Age: 68 Year
  Sex: Male
  Weight: 99.79 kg

DRUGS (2)
  1. TESTOSTERONE. [Concomitant]
     Active Substance: TESTOSTERONE
  2. CIALIS [Suspect]
     Active Substance: TADALAFIL
     Route: 048
     Dates: start: 20150205, end: 20150909

REACTIONS (1)
  - Skin lesion [None]

NARRATIVE: CASE EVENT DATE: 20150805
